FAERS Safety Report 8980697 (Version 2)
Quarter: 2013Q1

REPORT INFORMATION
  Report Type: Report from Study
  Country: US (occurrence: US)
  Receive Date: 20121221
  Receipt Date: 20130212
  Transmission Date: 20140127
  Serious: Yes (Hospitalization, Other)
  Sender: FDA-Public Use
  Company Number: US-NAPPMUNDI-USA-2012-0097073

PATIENT
  Age: 59 Year
  Sex: Male
  Weight: 73.92 kg

DRUGS (4)
  1. OXYCONTIN (NDA 22-272) [Suspect]
     Indication: BACK PAIN
     Dosage: 80 MG, BID
     Route: 048
  2. OXYCONTIN (NDA 22-272) [Suspect]
     Dosage: 80 MG, 2 PER DAY
  3. DILAUDID TABLET [Suspect]
     Indication: BREAKTHROUGH PAIN
     Dosage: UNK
     Route: 065
  4. ZANTAC [Concomitant]
     Indication: ABDOMINAL DISCOMFORT
     Route: 065

REACTIONS (3)
  - Pelvic fracture [Unknown]
  - Road traffic accident [Unknown]
  - Pain [Unknown]
